FAERS Safety Report 15683922 (Version 1)
Quarter: 2018Q4

REPORT INFORMATION
  Report Type: Report from Study
  Country: US (occurrence: US)
  Receive Date: 20181204
  Receipt Date: 20181204
  Transmission Date: 20190205
  Serious: Yes (Other)
  Sender: FDA-Public Use
  Company Number: US-TEVA-2018-US-983290

PATIENT
  Age: 35 Year
  Sex: Male

DRUGS (2)
  1. MORPHINE [Suspect]
     Active Substance: MORPHINE
     Indication: OVERDOSE
     Route: 065
  2. ROXY [Suspect]
     Active Substance: OXYCODONE
     Indication: DRUG ABUSE
     Route: 045

REACTIONS (5)
  - Road traffic accident [Unknown]
  - Overdose [Unknown]
  - Miosis [Unknown]
  - Drug abuse [Unknown]
  - Unresponsive to stimuli [Recovered/Resolved]
